FAERS Safety Report 25623441 (Version 2)
Quarter: 2025Q3

REPORT INFORMATION
  Report Type: Spontaneous
  Country: US (occurrence: US)
  Receive Date: 20250730
  Receipt Date: 20250820
  Transmission Date: 20251021
  Serious: No
  Sender: VERTEX
  Company Number: US-VERTEX PHARMACEUTICALS-2025-012092

PATIENT
  Age: 54 Year
  Sex: Male

DRUGS (2)
  1. JOURNAVX [Suspect]
     Active Substance: SUZETRIGINE
     Indication: Pain
     Dosage: 50 MG, BID
     Route: 048
     Dates: start: 20250711, end: 20250725
  2. OXYCODONE [Concomitant]
     Active Substance: OXYCODONE
     Dosage: 10 MG, TID (THREE TIMES A DAY)

REACTIONS (2)
  - Pruritus [Recovered/Resolved]
  - Palpitations [Recovered/Resolved]

NARRATIVE: CASE EVENT DATE: 20250711
